FAERS Safety Report 4908439-2 (Version None)
Quarter: 2006Q1

REPORT INFORMATION
  Report Type: 
  Country: None (occurrence: None)
  Receive Date: 20060210
  Receipt Date: 20050622
  Transmission Date: 20060701
  Serious: No
  Sender: FDA-Public Use
  Company Number: US-GLAXOSMITHKLINE-A0563792A

PATIENT
  Sex: Male

DRUGS (6)
  1. PAXIL CR [Suspect]
     Dosage: 37.5MG PER DAY
     Route: 048
  2. LIPITOR [Concomitant]
  3. NEXIUM [Concomitant]
  4. INDERAL [Concomitant]
  5. TRINORINYL [Concomitant]
     Route: 065
  6. ATIVAN [Concomitant]

REACTIONS (1)
  - AGITATION [None]
